FAERS Safety Report 25004111 (Version 1)
Quarter: 2025Q1

REPORT INFORMATION
  Report Type: Spontaneous
  Country: US (occurrence: US)
  Receive Date: 20250224
  Receipt Date: 20250224
  Transmission Date: 20250408
  Serious: No
  Sender: RECORDATI
  Company Number: US-RECORDATI RARE DISEASE INC.-2024006872

PATIENT

DRUGS (7)
  1. ISTURISA [Suspect]
     Active Substance: OSILODROSTAT PHOSPHATE
     Indication: Pituitary-dependent Cushing^s syndrome
     Dosage: 2 MG ISTURISA IN MORNING AND 3 MG AT BEDTIME,  1MG (2MG QAM AND 3MG QHS)
     Route: 048
     Dates: start: 20221228
  2. AMLODIPINE BESYLATE [Concomitant]
     Active Substance: AMLODIPINE BESYLATE
     Indication: Product used for unknown indication
     Dosage: 2.5 MG, BIW, TABLET
     Route: 048
     Dates: start: 20220401
  3. ESTRADIOL [Concomitant]
     Active Substance: ESTRADIOL
     Indication: Product used for unknown indication
     Dosage: 0.1 MG/GM, VAGINAL CREAM, QD
     Route: 067
     Dates: start: 20220622
  4. LEVOTHYROXINE SODIUM [Concomitant]
     Active Substance: LEVOTHYROXINE SODIUM
     Indication: Product used for unknown indication
     Dosage: 88 MICROGRAM, QD, TABLET
     Route: 048
     Dates: start: 20190501
  5. YL VITAMIN C [Concomitant]
     Indication: Product used for unknown indication
     Dosage: 500 MG, BID, TABLET
     Route: 048
     Dates: start: 19980701
  6. TUMS ULTRA [Concomitant]
     Active Substance: CALCIUM CARBONATE
     Indication: Product used for unknown indication
     Dosage: 1000 MG, QD, CHEWABLE TABLET
     Route: 048
     Dates: start: 20240321
  7. FORTEO [Concomitant]
     Active Substance: TERIPARATIDE
     Indication: Product used for unknown indication
     Dosage: 600 (UNSPECIFIED DOSE UNIT), SOLUTION, QD, PEN-IN,
     Route: 058
     Dates: start: 20240624

REACTIONS (1)
  - COVID-19 [Unknown]

NARRATIVE: CASE EVENT DATE: 20240904
